FAERS Safety Report 23899187 (Version 1)
Quarter: 2024Q2

REPORT INFORMATION
  Report Type: Spontaneous
  Country: US (occurrence: US)
  Receive Date: 20240526
  Receipt Date: 20240526
  Transmission Date: 20240715
  Serious: Yes (Other)
  Sender: FDA-Public Use
  Company Number: US-DRL-USA-LIT/USA/24/0007437

PATIENT
  Age: 2 Week
  Sex: Female

DRUGS (2)
  1. SODIUM NITROPRUSSIDE [Suspect]
     Active Substance: SODIUM NITROPRUSSIDE
     Indication: Hypertension
     Dosage: UPTO 10 MCG/KG/MIN
  2. FENOLDOPAM [Concomitant]
     Active Substance: FENOLDOPAM
     Indication: Hypertension

REACTIONS (4)
  - Toxicity to various agents [Unknown]
  - Lactic acidosis [Recovered/Resolved]
  - Haemolysis [Unknown]
  - Drug ineffective [Unknown]
